FAERS Safety Report 4476855-1 (Version None)
Quarter: 2004Q3

REPORT INFORMATION
  Report Type: 
  Country: None (occurrence: None)
  Receive Date: 20040923
  Receipt Date: 20040630
  Transmission Date: 20050211
  Serious: No
  Sender: FDA-Public Use
  Company Number: USA040670287

PATIENT
  Age: 77 Year
  Sex: Female
  Weight: 91 kg

DRUGS (12)
  1. FORTEO [Suspect]
     Indication: OSTEOPOROSIS
     Dosage: 20 UG DAY
     Dates: start: 20040607
  2. LIPITOR [Concomitant]
  3. CELEBREX [Concomitant]
  4. FIBER [Concomitant]
  5. SYNTHROID [Concomitant]
  6. CALCIUM [Concomitant]
  7. ALLOPURINOL [Concomitant]
  8. NORCO [Concomitant]
  9. MICARDIS [Concomitant]
  10. FUROSEMIDE [Concomitant]
  11. DITROPAN [Concomitant]
  12. NORVASC [Concomitant]

REACTIONS (2)
  - INJECTION SITE ERYTHEMA [None]
  - INJECTION SITE HAEMORRHAGE [None]
